FAERS Safety Report 25588398 (Version 2)
Quarter: 2025Q4

REPORT INFORMATION
  Report Type: Spontaneous
  Country: US (occurrence: None)
  Receive Date: 20250722
  Receipt Date: 20251216
  Transmission Date: 20260118
  Serious: No
  Sender: ENDO
  Company Number: US-ENDO USA, INC.-2025-000969

PATIENT
  Sex: Male

DRUGS (5)
  1. XIAFLEX [Suspect]
     Active Substance: COLLAGENASE CLOSTRIDIUM HISTOLYTICUM
     Indication: Peyronie^s disease
     Dosage: 0.58 MILLIGRAM, ONCE EVERY 6WKS
  2. EDEX [Suspect]
     Active Substance: ALPROSTADIL
     Indication: Product used for unknown indication
     Dosage: UNK UNKNOWN, UNKNOWN
  3. EDEX [Suspect]
     Active Substance: ALPROSTADIL
  4. EDEX [Suspect]
     Active Substance: ALPROSTADIL
  5. EDEX [Suspect]
     Active Substance: ALPROSTADIL

REACTIONS (2)
  - Erection increased [Unknown]
  - Painful erection [Unknown]
